FAERS Safety Report 6426448-1 (Version None)
Quarter: 2009Q4

REPORT INFORMATION
  Report Type: 
  Country: None (occurrence: None)
  Receive Date: 20091104
  Receipt Date: 20091028
  Transmission Date: 20100525
  Serious: Yes (Hospitalization)
  Sender: FDA-Public Use
  Company Number: PHHY2009GB43335

PATIENT
  Sex: Male

DRUGS (6)
  1. CLOZARIL [Suspect]
     Indication: SCHIZOPHRENIA
     Dosage: UNK
     Dates: start: 20030204
  2. SULPIRIDE [Concomitant]
     Indication: SCHIZOPHRENIA
     Dosage: 300 MG, BID
     Route: 048
  3. HYOSCINE [Concomitant]
     Indication: SALIVARY HYPERSECRETION
     Dosage: 300 MG, UNK
     Route: 048
  4. PERINDOPRIL ERBUMINE [Concomitant]
     Indication: RENAL FAILURE CHRONIC
     Dosage: 2 MG, UNK
     Route: 048
  5. SIMVASTATIN [Concomitant]
     Indication: RENAL FAILURE CHRONIC
     Dosage: 10 MG, UNK
  6. ASPIRIN [Concomitant]
     Dosage: 75 MG, UNK
     Route: 048

REACTIONS (6)
  - BLOOD CREATINE PHOSPHOKINASE INCREASED [None]
  - FALL [None]
  - HYPOXIA [None]
  - LUNG DISORDER [None]
  - PNEUMONIA [None]
  - PYREXIA [None]
